FAERS Safety Report 19154089 (Version 2)
Quarter: 2021Q2

REPORT INFORMATION
  Report Type: Report from Study
  Country: TR (occurrence: TR)
  Receive Date: 20210419
  Receipt Date: 20210423
  Transmission Date: 20210717
  Serious: Yes (Other)
  Sender: FDA-Public Use
  Company Number: NVSC2021TR083719

PATIENT
  Age: 51 Year
  Sex: Male
  Weight: 76 kg

DRUGS (4)
  1. GEFITINIB. [Concomitant]
     Active Substance: GEFITINIB
     Indication: LUNG ADENOCARCINOMA
     Dosage: 250 MG, DAILY
     Route: 065
     Dates: start: 20201118, end: 20210217
  2. INC280 [Suspect]
     Active Substance: CAPMATINIB
     Indication: EGFR GENE MUTATION
  3. INC280 [Suspect]
     Active Substance: CAPMATINIB
     Indication: LUNG ADENOCARCINOMA
     Dosage: 800 MG
     Route: 048
     Dates: start: 20201020, end: 20210217
  4. GEFITINIB. [Concomitant]
     Active Substance: GEFITINIB
     Indication: EGFR GENE MUTATION

REACTIONS (3)
  - Drug ineffective [Unknown]
  - Malignant neoplasm progression [Unknown]
  - Lung adenocarcinoma [Unknown]

NARRATIVE: CASE EVENT DATE: 20210217
